FAERS Safety Report 8960462 (Version 1)
Quarter: 2012Q4

REPORT INFORMATION
  Report Type: Spontaneous
  Country: US (occurrence: None)
  Receive Date: 20121211
  Receipt Date: 20121211
  Transmission Date: 20130627
  Serious: Yes (Hospitalization)
  Sender: FDA-Public Use
  Company Number: None

PATIENT
  Age: 66 Year
  Sex: Male
  Weight: 98.8 kg

DRUGS (4)
  1. NAFCILLIN [Suspect]
     Indication: WOUND INFECTION STAPHYLOCOCCAL
     Dosage: 2 GM Other IV
     Route: 042
     Dates: start: 20121013, end: 20121015
  2. NAFCILLIN [Suspect]
     Indication: PNEUMONIA
     Dosage: 2 GM Other IV
     Route: 042
     Dates: start: 20121013, end: 20121015
  3. CIPROFLOXACIN [Suspect]
     Indication: WOUND INFECTION
     Dosage: 750 MG EVERY DAY PO
     Route: 048
     Dates: start: 20121013
  4. CIPROFLOXACIN [Suspect]
     Indication: SERRATIA INFECTION
     Dosage: 750 MG EVERY DAY PO
     Route: 048
     Dates: start: 20121013

REACTIONS (12)
  - Tubulointerstitial nephritis [None]
  - Acute prerenal failure [None]
  - Eosinophil percentage increased [None]
  - Type IV hypersensitivity reaction [None]
  - Hepatic cirrhosis [None]
  - Blood albumin decreased [None]
  - Coagulation test abnormal [None]
  - Hepatic neoplasm [None]
  - Hepatorenal syndrome [None]
  - Renal failure acute [None]
  - Liver disorder [None]
  - Liver function test abnormal [None]
